FAERS Safety Report 8764628 (Version 1)
Quarter: 2012Q4

REPORT INFORMATION
  Report Type: 
  Country: CN (occurrence: CN)
  Receive Date: 20120831
  Receipt Date: 20120831
  Transmission Date: 20130627
  Serious: Yes (Other)
  Sender: FDA-Public Use
  Company Number: CN-ASTRAZENECA-2012SE63909

PATIENT
  Age: 26331 Day
  Sex: Male
  Weight: 70 kg

DRUGS (1)
  1. FELODIPINE [Suspect]
     Indication: HYPERTENSION
     Route: 048
     Dates: start: 20100323, end: 20100323

REACTIONS (1)
  - Anaphylactoid reaction [Recovering/Resolving]
